FAERS Safety Report 9317975 (Version 1)
Quarter: 2013Q2

REPORT INFORMATION
  Report Type: Spontaneous
  Country: US (occurrence: US)
  Receive Date: 20130530
  Receipt Date: 20130530
  Transmission Date: 20140414
  Serious: No
  Sender: FDA-Public Use
  Company Number: US-NOVEN-12US005450

PATIENT
  Age: 65 Year
  Sex: Female
  Weight: 97.51 kg

DRUGS (9)
  1. DAYTRANA [Suspect]
     Indication: ATTENTION DEFICIT/HYPERACTIVITY DISORDER
     Dosage: 30 MG, QD
     Route: 062
     Dates: start: 201209
  2. WELLBUTRIN [Concomitant]
     Indication: DEPRESSION
     Route: 048
  3. LAMICTAL [Concomitant]
     Indication: DEPRESSION
     Route: 048
  4. CITALOPRAM [Concomitant]
     Indication: DEPRESSION
     Route: 048
  5. NEURONTIN [Concomitant]
     Indication: PAIN
     Route: 048
  6. CYMBALTA [Concomitant]
     Indication: PAIN
     Route: 048
  7. LISINOPRIL [Concomitant]
     Indication: HYPERTENSION
     Route: 048
  8. B12                                /00056201/ [Concomitant]
     Route: 048
  9. CALCIUM                            /00060701/ [Concomitant]
     Route: 048

REACTIONS (3)
  - Off label use [Not Recovered/Not Resolved]
  - Product quality issue [Not Recovered/Not Resolved]
  - No adverse event [None]
